FAERS Safety Report 23758044 (Version 2)
Quarter: 2024Q2

REPORT INFORMATION
  Report Type: Spontaneous
  Country: US (occurrence: US)
  Receive Date: 20240418
  Receipt Date: 20240502
  Transmission Date: 20240716
  Serious: Yes (Death)
  Sender: FDA-Public Use
  Company Number: US-AstraZeneca-CH-00608276A

PATIENT
  Sex: Female
  Weight: 78.925 kg

DRUGS (1)
  1. ULTOMIRIS [Suspect]
     Active Substance: RAVULIZUMAB-CWVZ
     Indication: Myasthenia gravis
     Dosage: 2700 MILLIGRAM, Q2W
     Route: 042
     Dates: start: 20230329

REACTIONS (1)
  - Organ failure [Fatal]
